FAERS Safety Report 13968501 (Version 1)
Quarter: 2017Q3

REPORT INFORMATION
  Report Type: Spontaneous
  Country: DE (occurrence: DE)
  Receive Date: 20170914
  Receipt Date: 20170914
  Transmission Date: 20171128
  Serious: Yes (Other)
  Sender: FDA-Public Use
  Company Number: DE-JNJFOC-20170905956

PATIENT
  Age: 56 Year
  Sex: Female

DRUGS (1)
  1. HALDOL [Suspect]
     Active Substance: HALOPERIDOL
     Indication: PRODUCT USED FOR UNKNOWN INDICATION
     Dosage: HALDOL DEPOT
     Route: 065

REACTIONS (2)
  - Glycosylated haemoglobin increased [Unknown]
  - Type 1 diabetes mellitus [Not Recovered/Not Resolved]
